FAERS Safety Report 6123704-1 (Version None)
Quarter: 2009Q1

REPORT INFORMATION
  Report Type: 
  Country: None (occurrence: None)
  Receive Date: 20090319
  Receipt Date: 20090317
  Transmission Date: 20090719
  Serious: Yes (Death)
  Sender: FDA-Public Use
  Company Number: US-BAYER-200836238NA

PATIENT
  Age: 49 Year
  Sex: Male

DRUGS (1)
  1. BETASERON [Suspect]
     Indication: PROGRESSIVE MULTIPLE SCLEROSIS
     Dosage: TOTAL DAILY DOSE: 8 MIU
     Route: 058
     Dates: start: 20060611

REACTIONS (4)
  - DEHYDRATION [None]
  - FAECAL INCONTINENCE [None]
  - MULTIPLE SCLEROSIS [None]
  - URINARY INCONTINENCE [None]
